FAERS Safety Report 5164335-X (Version None)
Quarter: 2006Q4

REPORT INFORMATION
  Report Type: 
  Country: None (occurrence: None)
  Receive Date: 20061205
  Receipt Date: 20061120
  Transmission Date: 20070319
  Serious: Yes (Other)
  Sender: FDA-Public Use
  Company Number: US-BAYER-200616618BWH

PATIENT
  Age: 75 Year
  Sex: Male

DRUGS (8)
  1. NEXAVAR [Suspect]
     Indication: MALIGNANT MELANOMA
     Dosage: TOTAL DAILY DOSE: 800 MG  UNIT DOSE: 200 MG
     Route: 048
     Dates: start: 20060619
  2. NEXAVAR [Suspect]
     Dosage: TOTAL DAILY DOSE: 800 MG  UNIT DOSE: 200 MG
     Route: 048
     Dates: start: 20060915
  3. NEXAVAR [Suspect]
     Dosage: TOTAL DAILY DOSE: 400 MG  UNIT DOSE: 200 MG
     Route: 048
     Dates: start: 20061026
  4. LEXAPRO [Concomitant]
  5. LISINOPRIL [Concomitant]
  6. ZOCOR [Concomitant]
  7. CARBOPLATIN [Concomitant]
  8. TAXOL [Concomitant]

REACTIONS (5)
  - FLUSHING [None]
  - PARAESTHESIA [None]
  - PRURITUS [None]
  - RASH [None]
  - THROMBOSIS [None]
